FAERS Safety Report 6100721-9 (Version None)
Quarter: 2009Q1

REPORT INFORMATION
  Report Type: 
  Country: None (occurrence: None)
  Receive Date: 20090303
  Receipt Date: 20090227
  Transmission Date: 20090719
  Serious: Yes (Death)
  Sender: FDA-Public Use
  Company Number: US-B.I. PHARMACEUTICALS,INC./RIDGEFIELD-2009-BP-00531BP

PATIENT
  Sex: Male

DRUGS (4)
  1. SPIRIVA [Suspect]
  2. COMBIVENT [Suspect]
  3. ALBUTEROL [Suspect]
  4. ADVAIR HFA [Suspect]

REACTIONS (1)
  - CHRONIC OBSTRUCTIVE PULMONARY DISEASE [None]
